FAERS Safety Report 8001200-4 (Version None)
Quarter: 2011Q4

REPORT INFORMATION
  Report Type: 
  Country: None (occurrence: None)
  Receive Date: 20111222
  Receipt Date: 20111219
  Transmission Date: 20120403
  Serious: Yes (Death)
  Sender: FDA-Public Use
  Company Number: US-PFIZER INC-2011308889

PATIENT
  Age: 54 Year
  Sex: Male

DRUGS (5)
  1. NADOLOL [Suspect]
  2. OXYCODONE HYDROCHLORIDE [Suspect]
  3. METHADONE [Suspect]
  4. IBUPROFEN [Suspect]
  5. ACETAMINOPHEN AND OXYCODONE HCL [Suspect]

REACTIONS (3)
  - CARDIAC ARREST [None]
  - RESPIRATORY ARREST [None]
  - COMPLETED SUICIDE [None]
